FAERS Safety Report 6572311-5 (Version None)
Quarter: 2010Q1

REPORT INFORMATION
  Report Type: 
  Country: None (occurrence: None)
  Receive Date: 20100205
  Receipt Date: 20100125
  Transmission Date: 20100710
  Serious: Yes (Death)
  Sender: FDA-Public Use
  Company Number: CA-WATSON-2010-01079

PATIENT

DRUGS (1)
  1. FENTANYL [Suspect]
     Indication: PAIN
     Dosage: UNK

REACTIONS (1)
  - DEATH [None]
